FAERS Safety Report 4358784-7 (Version None)
Quarter: 2004Q2

REPORT INFORMATION
  Report Type: 
  Country: None (occurrence: None)
  Receive Date: 20040511
  Receipt Date: 20040426
  Transmission Date: 20050107
  Serious: Yes (Hospitalization)
  Sender: FDA-Public Use
  Company Number: 196811

PATIENT
  Age: 47 Year
  Sex: Female
  Weight: 81.6475 kg

DRUGS (5)
  1. AVONEX [Suspect]
     Indication: MULTIPLE SCLEROSIS
     Dates: start: 20020101, end: 20020101
  2. AVONEX [Suspect]
     Indication: MULTIPLE SCLEROSIS
     Dosage: 30 MCG QW IM
     Dates: start: 20020101, end: 20030701
  3. AVONEX [Suspect]
     Indication: MULTIPLE SCLEROSIS
     Dates: start: 20030801, end: 20030801
  4. AVONEX [Suspect]
     Indication: MULTIPLE SCLEROSIS
     Dates: start: 20030901, end: 20040101
  5. AVONEX [Suspect]
     Indication: MULTIPLE SCLEROSIS
     Dosage: 30 MCG QW IM
     Dates: start: 20040101

REACTIONS (11)
  - ABASIA [None]
  - ARTHROPOD BITE [None]
  - ASTHENIA [None]
  - FATIGUE [None]
  - FEELING ABNORMAL [None]
  - HEADACHE [None]
  - INSOMNIA [None]
  - MULTIPLE SCLEROSIS [None]
  - PARAESTHESIA [None]
  - VOMITING [None]
  - WOUND [None]
